FAERS Safety Report 24412733 (Version 1)
Quarter: 2024Q4

REPORT INFORMATION
  Report Type: Spontaneous
  Country: US (occurrence: US)
  Receive Date: 20241008
  Receipt Date: 20241008
  Transmission Date: 20250115
  Serious: Yes (Other)
  Sender: BRISTOL MYERS SQUIBB
  Company Number: US-BRISTOL-MYERS SQUIBB COMPANY-2024-158458

PATIENT
  Age: 62 Year
  Sex: Male
  Weight: 83.01 kg

DRUGS (1)
  1. POMALYST [Suspect]
     Active Substance: POMALIDOMIDE
     Indication: Product used for unknown indication
     Dosage: 2WKSON, 1WKOFF
     Route: 048

REACTIONS (2)
  - Malignant neoplasm progression [Unknown]
  - Off label use [Unknown]
